FAERS Safety Report 8185367-3 (Version None)
Quarter: 2012Q1

REPORT INFORMATION
  Report Type: 
  Country: None (occurrence: None)
  Receive Date: 20120305
  Receipt Date: 20120222
  Transmission Date: 20120608
  Serious: Yes (Hospitalization)
  Sender: FDA-Public Use
  Company Number: US-SANOFI-AVENTIS-2012SA007479

PATIENT
  Age: 74 Year
  Sex: Female
  Weight: 42.4 kg

DRUGS (11)
  1. CISPLATIN [Suspect]
     Dosage: TOTAL DOSE:100MG
     Route: 033
     Dates: start: 20111130
  2. PACLITAXEL [Suspect]
     Indication: FALLOPIAN TUBE CANCER
     Dosage: OVER 3 HOURS ON DAY 1
     Route: 042
     Dates: start: 20110907, end: 20111115
  3. DOCETAXEL [Suspect]
     Indication: FALLOPIAN TUBE CANCER
     Dosage: SUBSTITUTED FOR PACLITAXEL AFTER REACTION DURING CYCLE 1 DAY 1
     Route: 065
  4. PACLITAXEL [Suspect]
     Dosage: ON DAY 8
     Route: 042
     Dates: start: 20110907, end: 20111115
  5. BEVACIZUMAB [Suspect]
     Dosage: DOSE:670 MG
     Route: 042
     Dates: start: 20111129
  6. CISPLATIN [Suspect]
     Indication: FALLOPIAN TUBE CANCER
     Dosage: ON DAY 2
     Route: 033
     Dates: start: 20110907
  7. CISPLATIN [Suspect]
     Dosage: TOTAL DOSE:100MG
     Route: 033
     Dates: start: 20120112
  8. DOCETAXEL [Suspect]
     Route: 065
     Dates: start: 20120111
  9. BEVACIZUMAB [Suspect]
     Dosage: DOSE:670 MG
     Route: 042
     Dates: start: 20120111
  10. BEVACIZUMAB [Suspect]
     Indication: FALLOPIAN TUBE CANCER
     Dosage: OVER 30-90 MIN ON DAY 1DOSE: 670 MG
     Route: 042
     Dates: start: 20110907
  11. PACLITAXEL [Suspect]
     Dosage: ON DAY 8
     Route: 042
     Dates: start: 20120118

REACTIONS (12)
  - FEBRILE NEUTROPENIA [None]
  - VOMITING [None]
  - HYPOKALAEMIA [None]
  - ASPIRATION [None]
  - HYPOXIA [None]
  - DEHYDRATION [None]
  - CONFUSIONAL STATE [None]
  - DIARRHOEA [None]
  - DECREASED APPETITE [None]
  - FAILURE TO THRIVE [None]
  - ANXIETY [None]
  - HYPERTENSION [None]
